FAERS Safety Report 5138658-4 (Version None)
Quarter: 2006Q4

REPORT INFORMATION
  Report Type: 
  Country: None (occurrence: None)
  Receive Date: 20061023
  Receipt Date: 20061006
  Transmission Date: 20070319
  Serious: Yes (Death, Hospitalization)
  Sender: FDA-Public Use
  Company Number: US200609006041

PATIENT
  Age: 79 Year
  Sex: Male
  Weight: 59.9 kg

DRUGS (12)
  1. FORTEO [Suspect]
     Indication: OSTEOPOROSIS
     Dosage: 20 UG, DAILY (1/D)
     Dates: start: 20060907, end: 20060910
  2. FORTEO 0EN (25MCG/ML) (FORTEO PEN 250MCG/ML (3ML)) PEN,DISPOSABLE [Concomitant]
  3. ADVAIR DISKUS 100/50 [Concomitant]
  4. ASPIRIN [Concomitant]
  5. CALTRATE (CALCIUM CARBONATE) [Concomitant]
  6. CENTRUM SILVER (ASCORBIC ACID, CALCIUM, MINERALS NOS, RETINOL, TOCOPHE [Concomitant]
  7. COMBIVENT (IPRATROPRIUM BROMIDE, SALBUTAMOL SULFATE) AEROSOL [Concomitant]
  8. FOSAMAX [Concomitant]
  9. PREVACID [Concomitant]
  10. SPIRIVA [Concomitant]
  11. VITAMIN B KOMPLEX (CALCIUM PANTOTHENATE, NICOTINAMIDE, PYRIDOXINE [Concomitant]
  12. XALATAN (LATANOPROST) EYE DROPS [Concomitant]

REACTIONS (4)
  - PHARMACEUTICAL PRODUCT COMPLAINT [None]
  - PLEURAL EFFUSION [None]
  - PNEUMONIA [None]
  - RESPIRATORY FAILURE [None]
